FAERS Safety Report 8253900-9 (Version None)
Quarter: 2012Q2

REPORT INFORMATION
  Report Type: 
  Country: None (occurrence: None)
  Receive Date: 20120402
  Receipt Date: 20120316
  Transmission Date: 20120825
  Serious: No
  Sender: FDA-Public Use
  Company Number: US-AMGEN-USASP2012017343

PATIENT
  Age: 52 Year
  Sex: Female
  Weight: 88.5 kg

DRUGS (3)
  1. FOLIC ACID [Concomitant]
     Dosage: UNK
  2. ENBREL [Suspect]
     Indication: RHEUMATOID ARTHRITIS
     Dosage: 50 MG, QWK
     Dates: start: 20120316
  3. METHOTREXATE [Concomitant]
     Dosage: UNK
     Route: 058

REACTIONS (1)
  - INJECTION SITE PAIN [None]
